FAERS Safety Report 15545729 (Version 8)
Quarter: 2019Q3

REPORT INFORMATION
  Report Type: Spontaneous
  Country: GB (occurrence: GB)
  Receive Date: 20181024
  Receipt Date: 20190927
  Transmission Date: 20191004
  Serious: Yes (Hospitalization)
  Sender: FDA-Public Use
  Company Number: GB-MYLANLABS-2018M1079219

PATIENT
  Sex: Female

DRUGS (2)
  1. CLOZARIL [Suspect]
     Active Substance: CLOZAPINE
     Dosage: UNK
     Route: 048
     Dates: start: 20010701
  2. CLOZARIL [Suspect]
     Active Substance: CLOZAPINE
     Indication: SCHIZOPHRENIA
     Dosage: UNK
     Route: 048
     Dates: start: 20000204

REACTIONS (8)
  - Anaemia [Not Recovered/Not Resolved]
  - Eating disorder [Unknown]
  - Hypersomnia [Unknown]
  - Confusional state [Unknown]
  - Sepsis [Unknown]
  - Hospitalisation [Unknown]
  - Swelling [Unknown]
  - Blood urine present [Unknown]
